FAERS Safety Report 10184234 (Version 1)
Quarter: 2014Q2

REPORT INFORMATION
  Report Type: Spontaneous
  Country: PT (occurrence: PT)
  Receive Date: 20140520
  Receipt Date: 20140520
  Transmission Date: 20141212
  Serious: Yes (Hospitalization)
  Sender: FDA-Public Use
  Company Number: PT-B.I. PHARMACEUTICALS,INC./RIDGEFIELD-2014-BI-22033PO

PATIENT
  Age: 97 Year
  Sex: Male

DRUGS (10)
  1. PRADAXA [Suspect]
     Indication: PRODUCT USED FOR UNKNOWN INDICATION
     Dosage: 220 MG
     Route: 065
  2. IRBESARTAN + HYDROCHLOROTHIAZIDE [Concomitant]
     Dosage: STRENGTH:150+12.5 MG
     Route: 065
  3. NITROGLYCERIN [Concomitant]
     Route: 062
  4. FUROSEMIDE [Concomitant]
     Dosage: 80 MG
     Route: 065
  5. AMIODARONE [Concomitant]
     Dosage: 200 MG
     Route: 065
  6. OMEPRAZOLE [Concomitant]
     Route: 065
  7. ALLOPURINOL [Concomitant]
     Dosage: 300 MG
     Route: 065
  8. IRON(III)-HYDROXIDE POLYMALTOSE COMPLEX [Concomitant]
     Route: 065
  9. DIURETIC (NOT SPECIFIED) [Concomitant]
     Route: 042
  10. WARFARIN [Concomitant]
     Route: 065

REACTIONS (12)
  - Rectal haemorrhage [Unknown]
  - Proctalgia [Unknown]
  - Renal impairment [Unknown]
  - Asthenia [Unknown]
  - Decreased appetite [Unknown]
  - Asthenia [Unknown]
  - Oedema peripheral [Unknown]
  - Generalised oedema [Unknown]
  - Renal impairment [Unknown]
  - Haemorrhage [Unknown]
  - Toxicity to various agents [Unknown]
  - Cardiac failure [Unknown]
